FAERS Safety Report 5196301-2 (Version None)
Quarter: 2006Q4

REPORT INFORMATION
  Report Type: 
  Country: None (occurrence: None)
  Receive Date: 20061222
  Receipt Date: 20061208
  Transmission Date: 20070319
  Serious: Yes (Hospitalization)
  Sender: FDA-Public Use
  Company Number: 2006151520

PATIENT
  Age: 39 Year
  Sex: Female

DRUGS (1)
  1. NORVASC [Suspect]
     Dosage: 90 MG, ORAL
     Route: 048

REACTIONS (1)
  - INTENTIONAL OVERDOSE [None]
